FAERS Safety Report 16412481 (Version 4)
Quarter: 2019Q3

REPORT INFORMATION
  Report Type: Spontaneous
  Country: US (occurrence: US)
  Receive Date: 20190610
  Receipt Date: 20190823
  Transmission Date: 20191004
  Serious: Yes (Other)
  Sender: FDA-Public Use
  Company Number: US-ASTRAZENECA-2018SF13665

PATIENT
  Sex: Male

DRUGS (44)
  1. NEXIUM [Suspect]
     Active Substance: ESOMEPRAZOLE MAGNESIUM
     Indication: GASTROOESOPHAGEAL REFLUX DISEASE
     Route: 048
     Dates: start: 20040201, end: 20101231
  2. PREVACID 24 HR [Suspect]
     Active Substance: LANSOPRAZOLE
     Indication: GASTROOESOPHAGEAL REFLUX DISEASE
     Route: 065
     Dates: start: 200906, end: 201012
  3. FOSINOPRIL [Concomitant]
     Active Substance: FOSINOPRIL
  4. SPIRONOLACTONE. [Concomitant]
     Active Substance: SPIRONOLACTONE
  5. VIAGRA [Concomitant]
     Active Substance: SILDENAFIL CITRATE
  6. CARVEDILOL. [Concomitant]
     Active Substance: CARVEDILOL
     Indication: HYPERTENSION
     Dates: start: 20170418
  7. BENADRYL [Concomitant]
     Active Substance: DIPHENHYDRAMINE HYDROCHLORIDE
     Indication: MULTIPLE ALLERGIES
     Dates: start: 200403, end: 201803
  8. LOSARTAN. [Concomitant]
     Active Substance: LOSARTAN
  9. NEXIUM [Suspect]
     Active Substance: ESOMEPRAZOLE MAGNESIUM
     Indication: GASTROOESOPHAGEAL REFLUX DISEASE
     Dosage: GENERIC
     Route: 065
     Dates: start: 20080519, end: 20110603
  10. TYLENOL [Concomitant]
     Active Substance: ACETAMINOPHEN
     Indication: BACK PAIN
  11. DOXEPIN [Concomitant]
     Active Substance: DOXEPIN
  12. PRILOSEC [Suspect]
     Active Substance: OMEPRAZOLE MAGNESIUM
     Indication: GASTROOESOPHAGEAL REFLUX DISEASE
     Dosage: GENERIC
     Route: 065
     Dates: start: 20110418, end: 20130309
  13. PRILOSEC OTC [Suspect]
     Active Substance: OMEPRAZOLE MAGNESIUM
     Indication: GASTROOESOPHAGEAL REFLUX DISEASE
     Route: 048
     Dates: start: 200307, end: 200402
  14. PREVACID [Suspect]
     Active Substance: LANSOPRAZOLE
     Indication: GASTROOESOPHAGEAL REFLUX DISEASE
     Route: 065
     Dates: start: 20030701, end: 20040101
  15. CANDESARTAN. [Concomitant]
     Active Substance: CANDESARTAN
  16. LASIX [Concomitant]
     Active Substance: FUROSEMIDE
  17. HYDRALAZINE [Concomitant]
     Active Substance: HYDRALAZINE HYDROCHLORIDE
     Indication: HYPERTENSION
     Dates: start: 20180101, end: 20180201
  18. MULTIVITAMINS [Concomitant]
     Active Substance: VITAMINS
     Indication: ROUTINE HEALTH MAINTENANCE
     Dates: start: 201001
  19. NEXIUM [Suspect]
     Active Substance: ESOMEPRAZOLE MAGNESIUM
     Indication: GASTROOESOPHAGEAL REFLUX DISEASE
     Route: 048
     Dates: start: 200301, end: 201012
  20. PRILOSEC [Suspect]
     Active Substance: OMEPRAZOLE MAGNESIUM
     Indication: GASTROOESOPHAGEAL REFLUX DISEASE
     Route: 048
     Dates: start: 20030101, end: 20030601
  21. PRILOSEC [Suspect]
     Active Substance: OMEPRAZOLE MAGNESIUM
     Indication: GASTROOESOPHAGEAL REFLUX DISEASE
     Route: 048
     Dates: start: 200301, end: 201012
  22. PREVACID [Suspect]
     Active Substance: LANSOPRAZOLE
     Indication: GASTROOESOPHAGEAL REFLUX DISEASE
     Route: 065
     Dates: start: 200307, end: 200401
  23. TIOTROPIUM [Concomitant]
     Active Substance: TIOTROPIUM
  24. CARVEDILOL. [Concomitant]
     Active Substance: CARVEDILOL
     Indication: CARDIAC FAILURE
     Dates: start: 20170418
  25. TORSEMIDE. [Concomitant]
     Active Substance: TORSEMIDE
     Indication: CARDIAC FAILURE
     Dates: start: 20170418, end: 20170518
  26. POLYETHYLENE GLYCOL [Concomitant]
     Active Substance: POLYETHYLENE GLYCOLS
     Indication: CONSTIPATION
     Dates: start: 20180112, end: 20180212
  27. FELODIPINE. [Concomitant]
     Active Substance: FELODIPINE
  28. METOPROLOL. [Concomitant]
     Active Substance: METOPROLOL
  29. CARVEDILOL. [Concomitant]
     Active Substance: CARVEDILOL
  30. MELATONIN [Concomitant]
     Active Substance: MELATONIN
  31. PRILOSEC OTC [Suspect]
     Active Substance: OMEPRAZOLE MAGNESIUM
     Indication: GASTROOESOPHAGEAL REFLUX DISEASE
     Route: 048
     Dates: start: 200301, end: 201012
  32. PANTOPRAZOLE [Suspect]
     Active Substance: PANTOPRAZOLE
     Indication: GASTROOESOPHAGEAL REFLUX DISEASE
     Route: 065
     Dates: start: 20170622, end: 20180112
  33. ALPRAZOLAM. [Concomitant]
     Active Substance: ALPRAZOLAM
  34. PAROXETINE. [Concomitant]
     Active Substance: PAROXETINE
  35. LOSARTAN. [Concomitant]
     Active Substance: LOSARTAN
     Indication: HYPERTENSION
     Dates: start: 20170418, end: 20170602
  36. ASPIRIN. [Concomitant]
     Active Substance: ASPIRIN
     Indication: CARDIAC DISORDER
     Dates: start: 201001
  37. ALPRAZOLAM. [Concomitant]
     Active Substance: ALPRAZOLAM
  38. PAROXETINE. [Concomitant]
     Active Substance: PAROXETINE
  39. NEXIUM [Suspect]
     Active Substance: ESOMEPRAZOLE MAGNESIUM
     Indication: GASTROOESOPHAGEAL REFLUX DISEASE
     Route: 048
     Dates: start: 20080423
  40. ALBUTEROL. [Concomitant]
     Active Substance: ALBUTEROL
  41. HYDROCODONE [Concomitant]
     Active Substance: HYDROCODONE
     Indication: NASOPHARYNGITIS
     Dates: start: 20160205, end: 20161130
  42. AMLODIPINE [Concomitant]
     Active Substance: AMLODIPINE BESYLATE
     Indication: HYPERTENSION
     Dates: start: 20161130, end: 20180112
  43. PREVACID [Suspect]
     Active Substance: LANSOPRAZOLE
     Indication: GASTROOESOPHAGEAL REFLUX DISEASE
     Route: 065
     Dates: start: 200301, end: 201012
  44. PEPCID AC [Concomitant]
     Active Substance: FAMOTIDINE
     Dates: start: 201001

REACTIONS (9)
  - Chronic kidney disease [Not Recovered/Not Resolved]
  - Anxiety [Unknown]
  - Cardiac disorder [Unknown]
  - Bipolar disorder [Unknown]
  - Depression [Unknown]
  - Acute kidney injury [Not Recovered/Not Resolved]
  - Stress [Unknown]
  - End stage renal disease [Not Recovered/Not Resolved]
  - Renal injury [Unknown]
